FAERS Safety Report 6581236-0 (Version None)
Quarter: 2010Q1

REPORT INFORMATION
  Report Type: 
  Country: None (occurrence: None)
  Receive Date: 20100215
  Receipt Date: 20100210
  Transmission Date: 20100710
  Serious: Yes (Death, Hospitalization)
  Sender: FDA-Public Use
  Company Number: DE-ABBOTT-10P-062-0625526-00

PATIENT
  Age: 62 Year
  Sex: Male

DRUGS (1)
  1. KLACID I.V. [Suspect]
     Indication: H1N1 INFLUENZA
     Route: 042
     Dates: start: 20091214, end: 20091218

REACTIONS (1)
  - LONG QT SYNDROME [None]
